FAERS Safety Report 5594694-5 (Version None)
Quarter: 2007Q4

REPORT INFORMATION
  Report Type: 
  Country: None (occurrence: None)
  Receive Date: 20071218
  Receipt Date: 20070823
  Transmission Date: 20080405
  Serious: Yes (Other)
  Sender: FDA-Public Use
  Company Number: US020729

PATIENT
  Sex: Female

DRUGS (1)
  1. FENTANYL CITRATE [Suspect]
     Indication: PAIN
     Dosage: BUCCAL
     Route: 002

REACTIONS (3)
  - ASTHMA [None]
  - EYE OEDEMA [None]
  - SWELLING FACE [None]
